FAERS Safety Report 19641749 (Version 2)
Quarter: 2021Q3

REPORT INFORMATION
  Report Type: Report from Study
  Country: None (occurrence: US)
  Receive Date: 20210731
  Receipt Date: 20210819
  Transmission Date: 20211014
  Serious: Yes (Hospitalization)
  Sender: FDA-Public Use
  Company Number: US-ABBVIE-21K-163-4013878-00

PATIENT
  Age: 66 Year
  Sex: Female
  Weight: 60.38 kg

DRUGS (5)
  1. HUMIRA [Suspect]
     Active Substance: ADALIMUMAB
     Indication: CROHN^S DISEASE
     Route: 058
     Dates: start: 201808, end: 20210603
  2. MODERNA COVID?19 VACCINE [Concomitant]
     Active Substance: CX-024414
     Indication: COVID-19 IMMUNISATION
     Dosage: MODERNA
     Route: 030
     Dates: start: 20210128, end: 20210128
  3. MODERNA COVID?19 VACCINE [Concomitant]
     Active Substance: CX-024414
     Dosage: MODERNA
     Route: 030
     Dates: start: 20210302, end: 20210302
  4. HUMIRA [Suspect]
     Active Substance: ADALIMUMAB
     Indication: JUVENILE IDIOPATHIC ARTHRITIS
  5. ACTEMRA [Concomitant]
     Active Substance: TOCILIZUMAB
     Indication: RHEUMATOID ARTHRITIS

REACTIONS (4)
  - Oxygen saturation decreased [Not Recovered/Not Resolved]
  - Dyspnoea [Not Recovered/Not Resolved]
  - Fatigue [Not Recovered/Not Resolved]
  - SARS-CoV-2 test positive [Recovered/Resolved]

NARRATIVE: CASE EVENT DATE: 20210606
